FAERS Safety Report 20264359 (Version 9)
Quarter: 2022Q1

REPORT INFORMATION
  Report Type: Report from Study
  Country: DE (occurrence: DE)
  Receive Date: 20211231
  Receipt Date: 20220228
  Transmission Date: 20220423
  Serious: Yes (Hospitalization, Other)
  Sender: FDA-Public Use
  Company Number: DE-CELGENE-DEU-20211207807

PATIENT
  Age: 54 Year
  Sex: Female
  Weight: 62 kg

DRUGS (34)
  1. REVLIMID [Suspect]
     Active Substance: LENALIDOMIDE
     Indication: Plasma cell myeloma
     Dosage: 25 MILLIGRAM
     Route: 048
     Dates: start: 20200312, end: 20200415
  2. REVLIMID [Suspect]
     Active Substance: LENALIDOMIDE
     Dosage: 10 MILLIGRAM
     Route: 048
     Dates: start: 20200424, end: 20200916
  3. REVLIMID [Suspect]
     Active Substance: LENALIDOMIDE
     Dosage: 10 MILLIGRAM
     Route: 048
     Dates: start: 20210215, end: 20210530
  4. REVLIMID [Suspect]
     Active Substance: LENALIDOMIDE
     Dosage: 10 MILLIGRAM
     Route: 048
     Dates: start: 20210607, end: 20211109
  5. REVLIMID [Suspect]
     Active Substance: LENALIDOMIDE
     Route: 048
     Dates: start: 20210701
  6. REVLIMID [Suspect]
     Active Substance: LENALIDOMIDE
     Route: 048
     Dates: start: 20210729
  7. REVLIMID [Suspect]
     Active Substance: LENALIDOMIDE
     Route: 048
     Dates: start: 20210826
  8. REVLIMID [Suspect]
     Active Substance: LENALIDOMIDE
     Route: 048
     Dates: start: 20211004
  9. REVLIMID [Suspect]
     Active Substance: LENALIDOMIDE
     Route: 048
     Dates: start: 20211109
  10. REVLIMID [Suspect]
     Active Substance: LENALIDOMIDE
     Route: 048
     Dates: start: 20211223
  11. CARFILZOMIB [Suspect]
     Active Substance: CARFILZOMIB
     Indication: Plasma cell myeloma
     Dosage: 36.8 MILLIGRAM
     Route: 041
     Dates: start: 20200312, end: 20200313
  12. CARFILZOMIB [Suspect]
     Active Substance: CARFILZOMIB
     Indication: Plasma cell myeloma
     Dosage: 66.24 MILLIGRAM
     Route: 041
     Dates: start: 20200319, end: 20200416
  13. CARFILZOMIB [Suspect]
     Active Substance: CARFILZOMIB
     Indication: Plasma cell myeloma
     Dosage: 49.68 MILLIGRAM
     Route: 041
     Dates: start: 20200424, end: 20200915
  14. CARFILZOMIB [Suspect]
     Active Substance: CARFILZOMIB
     Dosage: 49.68  MILLIGRAM
     Route: 041
     Dates: start: 20210215, end: 20210330
  15. CARFILZOMIB [Suspect]
     Active Substance: CARFILZOMIB
     Dosage: 65.52  MILLIGRAM
     Route: 041
     Dates: start: 20210412, end: 20210526
  16. CARFILZOMIB [Suspect]
     Active Substance: CARFILZOMIB
     Route: 065
     Dates: start: 20210526
  17. DEXAMETHASONE [Suspect]
     Active Substance: DEXAMETHASONE
     Indication: Plasma cell myeloma
     Dosage: 40 MILLIGRAM
     Route: 048
     Dates: start: 20200312, end: 20200918
  18. DEXAMETHASONE [Suspect]
     Active Substance: DEXAMETHASONE
     Dosage: 20 MILLIGRAM
     Route: 048
     Dates: start: 20210215, end: 20210531
  19. CHOLECALCIFEROL [Concomitant]
     Active Substance: CHOLECALCIFEROL
     Indication: Prophylaxis
     Dosage: 20000 IE
     Route: 048
     Dates: start: 20200402
  20. CHOLECALCIFEROL [Concomitant]
     Active Substance: CHOLECALCIFEROL
     Indication: Vitamin D deficiency
  21. ZOMETA [Concomitant]
     Active Substance: ZOLEDRONIC ACID
     Indication: Prophylaxis
     Dosage: 4 MILLIGRAM
     Route: 041
     Dates: start: 20200423
  22. CYCLOPHOSPHAMIDE [Concomitant]
     Active Substance: CYCLOPHOSPHAMIDE
     Indication: Haematopoietic stem cell mobilisation
     Route: 041
     Dates: start: 20200605, end: 20200605
  23. MELPHALAN [Concomitant]
     Active Substance: MELPHALAN
     Indication: Therapeutic product effect increased
     Dosage: 188 MILLIGRAM
     Route: 041
     Dates: start: 20201016, end: 20201017
  24. PANTOZOL [Concomitant]
     Active Substance: PANTOPRAZOLE SODIUM
     Indication: Prophylaxis
     Route: 048
     Dates: start: 20201117
  25. ACYCLOVIR [Concomitant]
     Active Substance: ACYCLOVIR
     Indication: Antiviral prophylaxis
     Dosage: 400 MILLIGRAM
     Route: 048
     Dates: start: 20210215
  26. ASPIRIN [Concomitant]
     Active Substance: ASPIRIN
     Indication: Thrombosis prophylaxis
     Dosage: 100 MILLIGRAM
     Route: 048
     Dates: start: 20210215
  27. SULFAMETHOXAZOLE\TRIMETHOPRIM [Concomitant]
     Active Substance: SULFAMETHOXAZOLE\TRIMETHOPRIM
     Indication: Antibiotic prophylaxis
     Route: 048
     Dates: start: 20210215
  28. METAMIZOLE [Concomitant]
     Active Substance: METAMIZOLE
     Indication: Spinal pain
     Dosage: 3 GRAM
     Route: 048
     Dates: start: 20210215
  29. PREGABALIN [Concomitant]
     Active Substance: PREGABALIN
     Indication: Spinal pain
     Dosage: 150 MILLIGRAM
     Route: 048
     Dates: start: 202106
  30. FENTANYL [Concomitant]
     Active Substance: FENTANYL
     Indication: Spinal pain
     Dosage: 37.5 MILLIGRAM
     Route: 062
     Dates: start: 20210729
  31. HYDROMORPHONE [Concomitant]
     Active Substance: HYDROMORPHONE
     Indication: Spinal pain
     Route: 048
     Dates: start: 20210729
  32. ETORICOXIB [Concomitant]
     Active Substance: ETORICOXIB
     Indication: Spinal pain
     Dosage: 60 MILLIGRAM
     Route: 048
     Dates: start: 20210729
  33. FILGRASTIM [Concomitant]
     Active Substance: FILGRASTIM
     Indication: Prophylaxis
     Dosage: 48 MIO IE QW
     Route: 058
     Dates: start: 20210826
  34. LEVOTHYROXINE SODIUM [Concomitant]
     Active Substance: LEVOTHYROXINE SODIUM
     Indication: Hypothyroidism
     Dosage: 125 MICROGRAM
     Route: 058
     Dates: start: 20211026

REACTIONS (1)
  - Malignant melanoma [Recovered/Resolved]

NARRATIVE: CASE EVENT DATE: 20211110
